FAERS Safety Report 10935099 (Version 2)
Quarter: 2015Q2

REPORT INFORMATION
  Report Type: Report from Study
  Country: BE (occurrence: BE)
  Receive Date: 20150320
  Receipt Date: 20150625
  Transmission Date: 20150821
  Serious: Yes (Hospitalization)
  Sender: FDA-Public Use
  Company Number: BE-ABBVIE-14P-013-1259839-00

PATIENT
  Sex: Female

DRUGS (5)
  1. DUODOPA [Suspect]
     Active Substance: CARBIDOPA\LEVODOPA
     Indication: PARKINSON^S DISEASE
     Dosage: AM DOSE=5.2ML, CD=1.6ML/H FOR 16HRS AND ED=1ML
     Route: 050
     Dates: start: 20131023, end: 20140519
  2. DUODOPA [Suspect]
     Active Substance: CARBIDOPA\LEVODOPA
     Dosage: M = 5.2 ML, CD = 2.1 ML/H DURING 16H, ED = 1.5 ML
     Route: 050
     Dates: start: 20150313
  3. DUODOPA [Suspect]
     Active Substance: CARBIDOPA\LEVODOPA
     Route: 050
     Dates: start: 20140712, end: 20140903
  4. DUODOPA [Suspect]
     Active Substance: CARBIDOPA\LEVODOPA
     Dosage: AM DOSE=5.2ML, CD=1.7ML/H FOR 16HRS AND ED=1ML
     Route: 050
     Dates: start: 20140531, end: 20140712
  5. DUODOPA [Suspect]
     Active Substance: CARBIDOPA\LEVODOPA
     Dosage: AM = 5.2 ML, CD = 1.9 ML/H DURING 16H, ED = 1.5 ML
     Route: 050
     Dates: start: 20140903, end: 20150313

REACTIONS (5)
  - Diarrhoea [Recovered/Resolved]
  - Gastroenteritis [Recovered/Resolved]
  - Freezing phenomenon [Recovering/Resolving]
  - On and off phenomenon [Recovering/Resolving]
  - Confusional state [Unknown]
